FAERS Safety Report 21746269 (Version 1)
Quarter: 2022Q4

REPORT INFORMATION
  Report Type: Spontaneous
  Country: US (occurrence: US)
  Receive Date: 20221219
  Receipt Date: 20221219
  Transmission Date: 20230113
  Serious: Yes (Other)
  Sender: FDA-Public Use
  Company Number: US-AUROBINDO-AUR-APL-2022-053117

PATIENT
  Age: 64 Year
  Sex: Male

DRUGS (7)
  1. ERTAPENEM [Suspect]
     Active Substance: ERTAPENEM
     Indication: Pseudomonas infection
     Dosage: UNK
     Route: 042
  2. ERTAPENEM [Suspect]
     Active Substance: ERTAPENEM
     Indication: Escherichia infection
  3. PREDNISONE [Suspect]
     Active Substance: PREDNISONE
     Indication: Immunosuppression
     Dosage: UNK
     Route: 065
  4. CEFEPIME [Suspect]
     Active Substance: CEFEPIME HYDROCHLORIDE
     Indication: Pseudomonas infection
     Dosage: 2 WEEKS
     Route: 042
  5. CEFEPIME [Suspect]
     Active Substance: CEFEPIME HYDROCHLORIDE
     Indication: Escherichia infection
  6. MYCOPHENOLATE MOFETIL [Suspect]
     Active Substance: MYCOPHENOLATE MOFETIL
     Indication: Product used for unknown indication
     Dosage: UNK
     Route: 065
  7. TACROLIMUS [Suspect]
     Active Substance: TACROLIMUS
     Indication: Product used for unknown indication
     Dosage: UNK
     Route: 065

REACTIONS (7)
  - Pseudomonas infection [Recovered/Resolved]
  - Cytomegalovirus viraemia [Recovered/Resolved]
  - Chronic kidney disease [Recovered/Resolved]
  - Drug ineffective [Unknown]
  - Escherichia infection [Recovered/Resolved]
  - Malacoplakia [Recovered/Resolved]
  - Anaemia [Recovered/Resolved]
